FAERS Safety Report 7003779-8 (Version None)
Quarter: 2010Q3

REPORT INFORMATION
  Report Type: 
  Country: None (occurrence: None)
  Receive Date: 20100920
  Receipt Date: 20091202
  Transmission Date: 20110219
  Serious: No
  Sender: FDA-Public Use
  Company Number: US-WYE-H12436109

PATIENT
  Sex: Female
  Weight: 72.64 kg

DRUGS (4)
  1. PRISTIQ [Suspect]
     Indication: DEPRESSION
     Route: 048
     Dates: start: 20091001, end: 20090101
  2. PRISTIQ [Interacting]
     Indication: BONE PAIN
     Route: 048
     Dates: start: 20090101
  3. TRAZODONE HCL [Concomitant]
  4. ALPRAZOLAM [Interacting]

REACTIONS (7)
  - ANXIETY [None]
  - DRUG INEFFECTIVE [None]
  - DRUG INTERACTION [None]
  - ENERGY INCREASED [None]
  - INSOMNIA [None]
  - NERVOUSNESS [None]
  - RESTLESSNESS [None]
